FAERS Safety Report 15238943 (Version 1)
Quarter: 2018Q3

REPORT INFORMATION
  Report Type: Spontaneous
  Country: FR (occurrence: FR)
  Receive Date: 20180803
  Receipt Date: 20180803
  Transmission Date: 20181010
  Serious: Yes (Life-Threatening, Hospitalization)
  Sender: FDA-Public Use
  Company Number: PHHY2018FR064147

PATIENT
  Age: 42 Year
  Sex: Male

DRUGS (7)
  1. MYLAN DEXAMETHASONE [Suspect]
     Active Substance: DEXAMETHASONE SODIUM PHOSPHATE
     Indication: GENERAL ANAESTHESIA
     Dosage: 8 MG, UNK
     Route: 042
  2. ATRACURIUM HOSPIRA [Suspect]
     Active Substance: ATRACURIUM BESYLATE
     Indication: GENERAL ANAESTHESIA
     Dosage: 40 MG, UNK
     Route: 042
  3. SUFENTANIL [Suspect]
     Active Substance: SUFENTANIL
     Indication: GENERAL ANAESTHESIA
     Dosage: 20 UG, UNK
     Route: 042
  4. KETAMINE [Suspect]
     Active Substance: KETAMINE
     Indication: ANAESTHESIA
     Dosage: 40 MG, UNK
     Route: 042
  5. ISOFUNDINE [Suspect]
     Active Substance: ACETIC ACID\CALCIUM CATION\MAGNESIUM CATION\MALIC ACID\POTASSIUM CATION\SODIUM CHLORIDE
     Indication: HYPOVOLAEMIA
     Dosage: UNK
     Route: 041
  6. PROPOFOL LIPURO [Suspect]
     Active Substance: PROPOFOL
     Indication: GENERAL ANAESTHESIA
     Dosage: 300 MG, UNK
     Route: 042
  7. VANCOMYCIN SANDOZ [Suspect]
     Active Substance: VANCOMYCIN
     Indication: ANTIBIOTIC PROPHYLAXIS
     Dosage: 2 G, UNK
     Route: 042

REACTIONS (1)
  - Type I hypersensitivity [Recovered/Resolved]

NARRATIVE: CASE EVENT DATE: 20171113
